FAERS Safety Report 4385810-1 (Version None)
Quarter: 2004Q2

REPORT INFORMATION
  Report Type: 
  Country: None (occurrence: None)
  Receive Date: 20040628
  Receipt Date: 20040114
  Transmission Date: 20050107
  Serious: Yes (Disabling)
  Sender: FDA-Public Use
  Company Number: DE-ROCHE-356038

PATIENT
  Age: 44 Year
  Sex: Male
  Weight: 75 kg

DRUGS (3)
  1. PEGASYS [Suspect]
     Indication: HEPATITIS C
     Dosage: FORMULATION REPORTED AS 180 MCG SYRINGES.
     Route: 058
     Dates: start: 20030315, end: 20040315
  2. PEGASYS [Suspect]
     Route: 058
     Dates: start: 20020215, end: 20030115
  3. REBETOL [Concomitant]
     Indication: HEPATITIS C
     Route: 048
     Dates: start: 20030315, end: 20040315

REACTIONS (6)
  - COLOUR BLINDNESS [None]
  - DEAFNESS [None]
  - HYPERMETROPIA [None]
  - LIVER FUNCTION TEST ABNORMAL [None]
  - TRANSAMINASES INCREASED [None]
  - VISUAL DISTURBANCE [None]
